FAERS Safety Report 14712750 (Version 11)
Quarter: 2022Q2

REPORT INFORMATION
  Report Type: Report from Study
  Country: CN (occurrence: None)
  Receive Date: 20180404
  Receipt Date: 20220624
  Transmission Date: 20220721
  Serious: Yes (Hospitalization)
  Sender: FDA-Public Use
  Company Number: CN-ROCHE-2095785

PATIENT
  Age: 54 Year
  Sex: Female
  Weight: 43 kg

DRUGS (56)
  1. ATEZOLIZUMAB [Suspect]
     Active Substance: ATEZOLIZUMAB
     Indication: Ovarian cancer
     Dosage: DATE OF MOST RECENT DOSE OF ATEZOLIZUMAB PRIOR TO SAE ONSET: 01/MAR/2018
     Route: 042
     Dates: start: 20180207
  2. PACLITAXEL [Suspect]
     Active Substance: PACLITAXEL
     Indication: Ovarian cancer
     Dosage: DATE OF MOST RECENT DOSE OF PACLITAXEL 240 MG PRIOR TO AE AND SAE ONSET 01/MAR/2018
     Route: 042
     Dates: start: 20180207
  3. CARBOPLATIN [Suspect]
     Active Substance: CARBOPLATIN
     Indication: Ovarian cancer
     Dosage: START DATE OF MOST RECENT DOSE(510 MG) OF STUDY DRUG PRIOR TO AE AND SAE: 01/MAR/2018
     Route: 042
     Dates: start: 20180207
  4. BEVACIZUMAB [Suspect]
     Active Substance: BEVACIZUMAB
     Indication: Ovarian cancer
     Dosage: DATE OF THE MOST DOSE 690 MG OF BEVACIZUMAB PRIOR TO AE AND SAE ONSET ON 01/MAR/2018
     Route: 042
     Dates: start: 20180301
  5. CAFFEIC ACID [Concomitant]
     Active Substance: CAFFEIC ACID
     Dates: start: 20180227, end: 20180304
  6. CAFFEIC ACID [Concomitant]
     Active Substance: CAFFEIC ACID
     Dates: start: 20180302, end: 20180302
  7. MUCOPOLYSACCHARIDE POLYSULFATE [Concomitant]
     Dates: start: 20180228
  8. COENZYME Q10 [Concomitant]
     Active Substance: DIETARY SUPPLEMENT\UBIDECARENONE
     Dosage: COENZYME Q10 SODIUM CHLORIDE INJECTION
     Dates: start: 20180228, end: 20180228
  9. DEXAMETHASONE SODIUM PHOSPHATE [Concomitant]
     Active Substance: DEXAMETHASONE SODIUM PHOSPHATE
     Indication: Hypersensitivity
     Route: 042
     Dates: start: 20180301, end: 20180301
  10. DEXAMETHASONE SODIUM PHOSPHATE [Concomitant]
     Active Substance: DEXAMETHASONE SODIUM PHOSPHATE
     Dosage: PREVENT ALLERGIES
     Route: 030
     Dates: start: 20180301, end: 20180301
  11. DIPHENHYDRAMINE HYDROCHLORIDE [Concomitant]
     Active Substance: DIPHENHYDRAMINE HYDROCHLORIDE
     Dosage: PREVENT ALLERGIES
     Dates: start: 20180301, end: 20180301
  12. DIPHENHYDRAMINE HYDROCHLORIDE [Concomitant]
     Active Substance: DIPHENHYDRAMINE HYDROCHLORIDE
     Dates: start: 20180410, end: 20180410
  13. DIPHENHYDRAMINE HYDROCHLORIDE [Concomitant]
     Active Substance: DIPHENHYDRAMINE HYDROCHLORIDE
     Dosage: PREVENT ALLERGIES
     Dates: start: 20180228, end: 20180228
  14. DIPHENHYDRAMINE HYDROCHLORIDE [Concomitant]
     Active Substance: DIPHENHYDRAMINE HYDROCHLORIDE
     Dosage: PREVENT ALLERGIES
     Dates: start: 20180301, end: 20180301
  15. HEPARIN SODIUM [Concomitant]
     Active Substance: HEPARIN SODIUM
     Dates: start: 20180302, end: 20180302
  16. OMEPRAZOLE SODIUM [Concomitant]
     Active Substance: OMEPRAZOLE SODIUM
     Dosage: PROTECT THE STOMACH
     Dates: start: 20180302, end: 20180302
  17. OMEPRAZOLE SODIUM [Concomitant]
     Active Substance: OMEPRAZOLE SODIUM
     Dates: start: 20180317, end: 20180325
  18. OMEPRAZOLE SODIUM [Concomitant]
     Active Substance: OMEPRAZOLE SODIUM
     Dates: start: 20180327, end: 20180327
  19. OMEPRAZOLE SODIUM [Concomitant]
     Active Substance: OMEPRAZOLE SODIUM
     Dates: start: 20180329, end: 20180329
  20. OMEPRAZOLE SODIUM [Concomitant]
     Active Substance: OMEPRAZOLE SODIUM
     Dosage: PROTECT THE STOMACH
     Dates: start: 20180228, end: 20180228
  21. VITAMIN C [Concomitant]
     Active Substance: ASCORBIC ACID
     Dosage: VITAMIN SUPPLEMENTATION
     Dates: start: 20180317, end: 20180325
  22. VITAMIN C [Concomitant]
     Active Substance: ASCORBIC ACID
     Dates: start: 20180327, end: 20180327
  23. VITAMIN C [Concomitant]
     Active Substance: ASCORBIC ACID
     Dates: start: 20180228, end: 20180228
  24. VITAMIN C [Concomitant]
     Active Substance: ASCORBIC ACID
     Dates: start: 20180327, end: 20180421
  25. VITAMIN C [Concomitant]
     Active Substance: ASCORBIC ACID
     Dates: start: 20180301, end: 20180301
  26. DEXTROSE [Concomitant]
     Active Substance: DEXTROSE
     Dates: start: 20180317, end: 20180325
  27. DEXTROSE [Concomitant]
     Active Substance: DEXTROSE
     Dates: start: 20180327, end: 20180327
  28. DEXTROSE [Concomitant]
     Active Substance: DEXTROSE
     Dates: start: 20180228, end: 20180228
  29. DEXTROSE [Concomitant]
     Active Substance: DEXTROSE
     Dates: start: 20180317, end: 20180325
  30. POTASSIUM CHLORIDE [Concomitant]
     Active Substance: POTASSIUM CHLORIDE
     Dosage: SUPPLEMENTARY ELECTROLYTE
     Dates: start: 20180317, end: 20180325
  31. POTASSIUM CHLORIDE [Concomitant]
     Active Substance: POTASSIUM CHLORIDE
     Dates: start: 20180327, end: 20180327
  32. POTASSIUM CHLORIDE [Concomitant]
     Active Substance: POTASSIUM CHLORIDE
     Dosage: SUPPLEMENTARY ELECTROLYTE
     Dates: start: 20180228, end: 20180228
  33. POTASSIUM CHLORIDE [Concomitant]
     Active Substance: POTASSIUM CHLORIDE
     Dates: start: 20180327, end: 20180421
  34. POTASSIUM CHLORIDE [Concomitant]
     Active Substance: POTASSIUM CHLORIDE
     Dates: start: 20180301, end: 20180301
  35. PIPERACILLIN [Concomitant]
     Active Substance: PIPERACILLIN
     Dosage: ANTI-INFECTION
     Dates: start: 20180318, end: 20180319
  36. CLOSTRIDIUM BUTYRICUM SPORES STRAIN M-55 [Concomitant]
     Active Substance: CLOSTRIDIUM BUTYRICUM SPORES STRAIN M-55
     Dosage: REGULATES GASTROINTESTINAL FUNCTION
     Dates: start: 20180327, end: 20180403
  37. METOCLOPRAMIDE DIHYDROCHLORIDE [Concomitant]
     Indication: Vomiting
     Dosage: STOP VOMITING
     Dates: start: 20180410, end: 20180410
  38. METOCLOPRAMIDE DIHYDROCHLORIDE [Concomitant]
     Dates: start: 20180410, end: 20180412
  39. CIMETIDINE [Concomitant]
     Active Substance: CIMETIDINE
     Dosage: PROTECT THE STOMACH
     Dates: start: 20180410, end: 20180410
  40. CIMETIDINE [Concomitant]
     Active Substance: CIMETIDINE
     Dosage: PROTECT THE STOMACH
     Dates: start: 20180228, end: 20180228
  41. CIMETIDINE [Concomitant]
     Active Substance: CIMETIDINE
     Dates: start: 20180301, end: 20180301
  42. DEXAMETHASONE [Concomitant]
     Active Substance: DEXAMETHASONE
     Dosage: PREVENT ALLERGIES
     Route: 042
     Dates: start: 20180410, end: 20180410
  43. DEXAMETHASONE [Concomitant]
     Active Substance: DEXAMETHASONE
     Route: 048
     Dates: start: 20180228, end: 20180301
  44. VITAMIN B6 [Concomitant]
     Active Substance: PYRIDOXINE HYDROCHLORIDE
     Dosage: VITAMIN SUPPLEMENTATION
     Dates: start: 20180302, end: 20180302
  45. VITAMIN B6 [Concomitant]
     Active Substance: PYRIDOXINE HYDROCHLORIDE
     Dates: start: 20180228, end: 20180228
  46. VITAMIN B6 [Concomitant]
     Active Substance: PYRIDOXINE HYDROCHLORIDE
     Dates: start: 20180301, end: 20180301
  47. LIDOCAINE HYDROCHLORIDE [Concomitant]
     Active Substance: LIDOCAINE HYDROCHLORIDE
     Indication: Anaesthesia
     Route: 061
     Dates: start: 20180228, end: 20180228
  48. TROPISETRON HYDROCHLORIDE [Concomitant]
     Active Substance: TROPISETRON HYDROCHLORIDE
     Indication: Vomiting
     Dates: start: 20180228, end: 20180228
  49. TROPISETRON HYDROCHLORIDE [Concomitant]
     Active Substance: TROPISETRON HYDROCHLORIDE
     Dates: start: 20180301, end: 20180301
  50. DEXAMETHASONE ACETATE [Concomitant]
     Active Substance: DEXAMETHASONE ACETATE
     Dosage: PREVENT ALLERGIES
     Dates: start: 20180228, end: 20180301
  51. PROMETHAZINE HYDROCHLORIDE [Concomitant]
     Active Substance: PROMETHAZINE HYDROCHLORIDE
     Dosage: PREVENT ALLERGIES
     Dates: start: 20180301, end: 20180301
  52. POVIDONE-IODINE [Concomitant]
     Active Substance: POVIDONE-IODINE
     Dosage: ASEPTIC
     Dates: start: 20180209
  53. DEXTRAN [Concomitant]
     Active Substance: DEXTRAN
     Dosage: DISPERSION TABLETS, ENRICH THE BLOOD
     Dates: start: 20180211
  54. DEXTRAN [Concomitant]
     Active Substance: DEXTRAN
     Dates: start: 20180205, end: 20180215
  55. PIPERACILLIN SODIUM\TAZOBACTAM SODIUM [Concomitant]
     Active Substance: PIPERACILLIN SODIUM\TAZOBACTAM SODIUM
     Dates: start: 20180318, end: 20180319
  56. INSULIN NOS [Concomitant]
     Active Substance: INSULIN NOS
     Indication: Blood glucose decreased
     Dates: start: 20180317, end: 20180325

REACTIONS (1)
  - Intestinal obstruction [Recovered/Resolved]

NARRATIVE: CASE EVENT DATE: 20180317
